FAERS Safety Report 10846692 (Version 1)
Quarter: 2015Q1

REPORT INFORMATION
  Report Type: Spontaneous
  Country: GB (occurrence: GB)
  Receive Date: 20150220
  Receipt Date: 20150220
  Transmission Date: 20150721
  Serious: Yes (Disabling)
  Sender: FDA-Public Use
  Company Number: GB-GALDERMA-GB15000584

PATIENT
  Age: 81 Year
  Sex: Female

DRUGS (1)
  1. MIRVASO [Suspect]
     Active Substance: BRIMONIDINE TARTRATE
     Indication: ROSACEA
     Dosage: 0.33%
     Route: 061

REACTIONS (2)
  - Skin discolouration [Recovering/Resolving]
  - Product use issue [Recovering/Resolving]

NARRATIVE: CASE EVENT DATE: 201403
